FAERS Safety Report 7936851-6 (Version None)
Quarter: 2011Q4

REPORT INFORMATION
  Report Type: 
  Country: None (occurrence: None)
  Receive Date: 20111123
  Receipt Date: 20111123
  Transmission Date: 20120403
  Serious: Yes (Other)
  Sender: FDA-Public Use
  Company Number: None

PATIENT
  Age: 48 Year
  Sex: Female
  Weight: 65.77 kg

DRUGS (1)
  1. KLONOPIN [Suspect]
     Indication: BIPOLAR DISORDER
     Dosage: 0.5 MG
     Route: 048

REACTIONS (1)
  - MEDICATION ERROR [None]
